FAERS Safety Report 24721287 (Version 1)
Quarter: 2024Q4

REPORT INFORMATION
  Report Type: Spontaneous
  Country: US (occurrence: None)
  Receive Date: 20241210
  Receipt Date: 20241210
  Transmission Date: 20250115
  Serious: Yes (Hospitalization)
  Sender: Public
  Company Number: None

PATIENT
  Age: 46 Year
  Sex: Female

DRUGS (11)
  1. HUMIRA [Suspect]
     Active Substance: ADALIMUMAB
     Dosage: FREQUENCY : EVERY OTHER WEEK;?
     Route: 058
     Dates: start: 20240319
  2. BACLOFEN [Concomitant]
     Active Substance: BACLOFEN
  3. CYCLOBENZAPR TAB 10MG [Concomitant]
  4. ELIQUIS [Concomitant]
     Active Substance: APIXABAN
  5. FAMOTIDINE [Concomitant]
     Active Substance: FAMOTIDINE
  6. GABAPENTIN TAB 600MG [Concomitant]
  7. IRON TAB 65MG [Concomitant]
  8. LIDOCAINE PAD5% [Concomitant]
  9. MELATONIN [Concomitant]
     Active Substance: MELATONIN
  10. PEPCID AC TAB 20MG [Concomitant]
  11. PLAVIX [Concomitant]
     Active Substance: CLOPIDOGREL BISULFATE

REACTIONS (9)
  - Fall [None]
  - Joint dislocation [None]
  - Meniscus injury [None]
  - Ligament rupture [None]
  - Ligament rupture [None]
  - Arterial injury [None]
  - Procedural complication [None]
  - Thrombosis [None]
  - Therapy interrupted [None]

NARRATIVE: CASE EVENT DATE: 20240808
